FAERS Safety Report 22605996 (Version 1)
Quarter: 2023Q2

REPORT INFORMATION
  Report Type: Spontaneous
  Country: US (occurrence: None)
  Receive Date: 20230614
  Receipt Date: 20230614
  Transmission Date: 20230721
  Serious: Yes (Life-Threatening, Other)
  Sender: FDA-Public Use
  Company Number: None

PATIENT
  Age: 85 Year
  Sex: Female
  Weight: 77.8 kg

DRUGS (1)
  1. PROPOFOL [Suspect]
     Active Substance: PROPOFOL

REACTIONS (3)
  - Hypotension [None]
  - Device delivery system issue [None]
  - Therapy cessation [None]

NARRATIVE: CASE EVENT DATE: 20230612
